FAERS Safety Report 9927447 (Version 2)
Quarter: 2014Q1

REPORT INFORMATION
  Report Type: Report from Study
  Country: US (occurrence: US)
  Receive Date: 20140227
  Receipt Date: 20140319
  Transmission Date: 20141002
  Serious: Yes (Hospitalization)
  Sender: FDA-Public Use
  Company Number: US-ROCHE-1351519

PATIENT
  Age: 54 Year
  Sex: Female

DRUGS (27)
  1. RIBAVIRIN [Suspect]
     Indication: HEPATITIS C
     Dosage: 2 DIVIDED DOSES
     Route: 048
     Dates: start: 20130604
  2. RITONAVIR [Suspect]
     Indication: HEPATITIS C
     Route: 048
     Dates: start: 20130604
  3. RITONAVIR [Suspect]
     Route: 048
  4. RITONAVIR [Suspect]
     Route: 048
  5. ABT-333 [Suspect]
     Indication: HEPATITIS C
     Route: 048
     Dates: start: 20130604
  6. AMLODIPINE [Suspect]
     Indication: HYPERTENSION
     Route: 048
     Dates: start: 20111227, end: 20130924
  7. AMLODIPINE [Suspect]
     Route: 048
     Dates: start: 20130925, end: 20131007
  8. SUCRALFATE [Concomitant]
     Indication: ABDOMINAL PAIN
     Route: 048
     Dates: start: 20120820
  9. ACETAMINOPHEN [Concomitant]
     Indication: ABDOMINAL PAIN
     Dosage: AS REQUIRED
     Route: 048
     Dates: start: 20120820
  10. ALLOPURINOL [Concomitant]
     Indication: GOUT
     Route: 048
     Dates: start: 20110914
  11. FUROSEMIDE [Concomitant]
     Indication: SWELLING
  12. ATENOLOL [Concomitant]
     Indication: HYPERTENSION
     Route: 048
     Dates: start: 20100429
  13. APIDRA [Concomitant]
     Indication: DIABETES MELLITUS
     Route: 058
     Dates: start: 20130101
  14. TIZANIDINE [Concomitant]
     Indication: MUSCLE SPASMS
     Dosage: AS REQUIRED
     Route: 048
     Dates: start: 20130501
  15. METOCLOPRAMIDE [Concomitant]
     Indication: ABDOMINAL PAIN
     Route: 048
     Dates: start: 20111227
  16. ZOFRAN [Concomitant]
     Indication: ABDOMINAL PAIN
     Dosage: EVERY 6 HOURS (AS NEEDED)
     Route: 048
     Dates: start: 20130617, end: 20130930
  17. ZOFRAN [Concomitant]
     Indication: NAUSEA
  18. BABY ASPIRIN [Concomitant]
     Route: 048
     Dates: start: 20100422
  19. CLARITIN [Concomitant]
     Indication: SEASONAL ALLERGY
     Route: 048
     Dates: start: 20130614
  20. HYDROXYZINE [Concomitant]
     Indication: PRURITUS
     Route: 048
  21. INSULIN REGULAR HUMAN [Concomitant]
     Indication: DIABETES MELLITUS
     Route: 058
     Dates: start: 20130116, end: 20130202
  22. LEVEMIR [Concomitant]
     Indication: DIABETES MELLITUS
     Dosage: EVERY NIGHT
     Route: 065
     Dates: start: 20130101
  23. LIRAGLUTIDE [Concomitant]
     Indication: DIABETES MELLITUS
     Route: 058
     Dates: start: 20130116, end: 20130202
  24. MAGNESIUM OXIDE [Concomitant]
     Route: 048
     Dates: start: 20120802
  25. OMEGA 3 ACID ETHYL ESTERS [Concomitant]
     Route: 048
     Dates: start: 20120820
  26. RETINOL [Concomitant]
     Route: 048
     Dates: start: 20110914
  27. TOCOPHEROL [Concomitant]
     Indication: VITAMIN E DEFICIENCY
     Route: 048
     Dates: start: 20110927

REACTIONS (1)
  - Oedema peripheral [Recovered/Resolved]
